FAERS Safety Report 16559767 (Version 1)
Quarter: 2019Q3

REPORT INFORMATION
  Report Type: Spontaneous
  Country: US (occurrence: US)
  Receive Date: 20190710
  Receipt Date: 20190710
  Transmission Date: 20191004
  Serious: Yes (Life-Threatening, Hospitalization, Disabling)
  Sender: FDA-Public Use
  Company Number: None

PATIENT
  Age: 71 Year
  Sex: Male
  Weight: 84.9 kg

DRUGS (2)
  1. METFORMIN [Suspect]
     Active Substance: METFORMIN HYDROCHLORIDE
     Indication: DIABETES MELLITUS
     Route: 048
     Dates: start: 20190630, end: 20190705
  2. LISINOPRIL. [Concomitant]
     Active Substance: LISINOPRIL

REACTIONS (10)
  - Nephrectomy [None]
  - Asthenia [None]
  - Renal failure [None]
  - Post procedural complication [None]
  - Back pain [None]
  - Hypotension [None]
  - Hyperkalaemia [None]
  - Hypophagia [None]
  - Abdominal pain [None]
  - Metabolic acidosis [None]

NARRATIVE: CASE EVENT DATE: 20190705
